APPROVED DRUG PRODUCT: NEVIRAPINE
Active Ingredient: NEVIRAPINE
Strength: 100MG
Dosage Form/Route: TABLET, EXTENDED RELEASE;ORAL
Application: A204621 | Product #002
Applicant: ALVOGEN INC
Approved: Nov 9, 2015 | RLD: No | RS: No | Type: DISCN